FAERS Safety Report 20230024 (Version 1)
Quarter: 2021Q4

REPORT INFORMATION
  Report Type: Report from Study
  Country: CO (occurrence: CO)
  Receive Date: 20211226
  Receipt Date: 20211226
  Transmission Date: 20220303
  Serious: Yes (Other)
  Sender: FDA-Public Use
  Company Number: CO-NOVARTISPH-NVSC2021CO295862

PATIENT
  Sex: Female
  Weight: 63 kg

DRUGS (3)
  1. ELTROMBOPAG OLAMINE [Suspect]
     Active Substance: ELTROMBOPAG OLAMINE
     Indication: Immune thrombocytopenia
     Dosage: UNK (3 YEARS AGO)
     Route: 048
  2. ELTROMBOPAG OLAMINE [Suspect]
     Active Substance: ELTROMBOPAG OLAMINE
     Dosage: 50 MG, QOD (50 MG ONE DAY (IT MEANS 2 TABLETS OF 25 MG DAILY) AND 25 MG THE NEXT DAY)
     Route: 048
     Dates: end: 20211221
  3. ELTROMBOPAG OLAMINE [Suspect]
     Active Substance: ELTROMBOPAG OLAMINE
     Dosage: 50 MG, QD
     Route: 048

REACTIONS (7)
  - Angina pectoris [Recovered/Resolved]
  - Vulvovaginal dryness [Unknown]
  - Dry eye [Unknown]
  - Dry skin [Unknown]
  - Arterial disorder [Recovered/Resolved]
  - Arterial occlusive disease [Recovered/Resolved]
  - Dry mouth [Unknown]
